FAERS Safety Report 9823071 (Version 2)
Quarter: 2015Q3

REPORT INFORMATION
  Report Type: Spontaneous
  Country: US (occurrence: US)
  Receive Date: 20140116
  Receipt Date: 20150807
  Transmission Date: 20151125
  Serious: No
  Sender: FDA-Public Use
  Company Number: US-GILEAD-2011-0036293

PATIENT
  Sex: Male

DRUGS (2)
  1. LETAIRIS [Suspect]
     Active Substance: AMBRISENTAN
     Indication: PRODUCT USED FOR UNKNOWN INDICATION
  2. VORICONAZOLE. [Concomitant]
     Active Substance: VORICONAZOLE

REACTIONS (2)
  - Liver function test abnormal [Unknown]
  - Drug interaction [Unknown]
